FAERS Safety Report 7650613-9 (Version None)
Quarter: 2011Q3

REPORT INFORMATION
  Report Type: 
  Country: None (occurrence: None)
  Receive Date: 20110802
  Receipt Date: 20110718
  Transmission Date: 20111222
  Serious: No
  Sender: FDA-Public Use
  Company Number: US-BAYER-2011-063889

PATIENT
  Age: 8 Year
  Sex: Female
  Weight: 29.478 kg

DRUGS (2)
  1. MULTI-VITAMIN [Concomitant]
  2. ALEVE (CAPLET) [Suspect]
     Indication: HEADACHE
     Dosage: 1 DF, ONCE, BOTTLE COUNT 100S
     Route: 048
     Dates: start: 20110718

REACTIONS (1)
  - HEADACHE [None]
